FAERS Safety Report 7439754-9 (Version None)
Quarter: 2011Q2

REPORT INFORMATION
  Report Type: 
  Country: None (occurrence: None)
  Receive Date: 20110427
  Receipt Date: 20110422
  Transmission Date: 20111010
  Serious: Yes (Life-Threatening, Hospitalization)
  Sender: FDA-Public Use
  Company Number: PHHY2010JP13481

PATIENT
  Sex: Male

DRUGS (13)
  1. ALOSITOL [Concomitant]
     Indication: HYPERURICAEMIA
     Dosage: 300 MG, UNK
     Route: 048
     Dates: start: 20100122
  2. FAROM [Concomitant]
     Indication: CHRONIC MYELOID LEUKAEMIA
     Dosage: 600 MG, UNK
     Route: 048
     Dates: start: 20100112, end: 20100116
  3. AMN107 [Suspect]
     Indication: CHRONIC MYELOID LEUKAEMIA
     Dosage: 800 MG DAILY
     Route: 048
     Dates: start: 20091228, end: 20100120
  4. URSO 250 [Concomitant]
     Indication: CHRONIC MYELOID LEUKAEMIA
     Dosage: 300 MG, UNK
     Route: 048
     Dates: start: 20100112, end: 20100116
  5. GLYCYRON [Concomitant]
     Indication: CHRONIC MYELOID LEUKAEMIA
     Dosage: 3 DF, UNK
     Route: 048
     Dates: start: 20100112, end: 20100116
  6. ADONA [Concomitant]
     Indication: CHRONIC MYELOID LEUKAEMIA
     Dosage: 90 MG, UNK
     Route: 048
     Dates: start: 20100112, end: 20100116
  7. AMN107 [Suspect]
     Dosage: 400 MG DAILY
     Route: 048
     Dates: start: 20100202, end: 20100225
  8. MUCOSTA [Concomitant]
     Indication: CHRONIC MYELOID LEUKAEMIA
     Dosage: 300 MG, UNK
     Route: 048
     Dates: start: 20100112, end: 20100116
  9. BLOPRESS [Concomitant]
     Indication: HYPERTENSION
     Dosage: 8 MG, UNK
     Route: 048
     Dates: start: 20100122
  10. LOXONIN [Concomitant]
     Indication: CHRONIC MYELOID LEUKAEMIA
     Dosage: 60 MG, UNK
     Route: 048
     Dates: start: 20091228, end: 20100120
  11. NORVASC [Concomitant]
     Indication: HYPERTENSION
     Dosage: 5 MG, UNK
     Route: 048
     Dates: start: 20100122
  12. TAKEPRON [Concomitant]
     Dosage: 15 MG, UNK
     Route: 048
     Dates: start: 20100122
  13. ALLOPURINOL [Concomitant]
     Indication: CHRONIC MYELOID LEUKAEMIA
     Dosage: 200 MG, UNK
     Route: 048
     Dates: start: 20091228, end: 20100120

REACTIONS (11)
  - GAMMA-GLUTAMYLTRANSFERASE INCREASED [None]
  - CHRONIC MYELOID LEUKAEMIA TRANSFORMATION [None]
  - PLATELET COUNT DECREASED [None]
  - METAMYELOCYTE COUNT INCREASED [None]
  - BLOOD LACTATE DEHYDROGENASE INCREASED [None]
  - NEUTROPHIL COUNT DECREASED [None]
  - BLAST CRISIS IN MYELOGENOUS LEUKAEMIA [None]
  - BLOOD URIC ACID INCREASED [None]
  - DRUG INEFFECTIVE [None]
  - PROMYELOCYTE COUNT INCREASED [None]
  - MYELOCYTE COUNT INCREASED [None]
